FAERS Safety Report 5444630-7 (Version None)
Quarter: 2007Q3

REPORT INFORMATION
  Report Type: 
  Country: None (occurrence: None)
  Receive Date: 20070906
  Receipt Date: 20070618
  Transmission Date: 20080115
  Serious: No
  Sender: FDA-Public Use
  Company Number: A0594457A

PATIENT
  Age: 55 Year
  Sex: Male

DRUGS (6)
  1. REQUIP [Suspect]
     Indication: PARKINSON'S DISEASE
     Dosage: 4MG THREE TIMES PER DAY
     Route: 048
     Dates: start: 20040901, end: 20060206
  2. AMANTADINE HCL [Concomitant]
  3. PROVIGIL [Concomitant]
  4. ZESTRIL [Concomitant]
  5. SINEMET [Concomitant]
  6. AMBIEN [Concomitant]

REACTIONS (1)
  - PATHOLOGICAL GAMBLING [None]
